FAERS Safety Report 20175766 (Version 5)
Quarter: 2022Q2

REPORT INFORMATION
  Report Type: Spontaneous
  Country: FR (occurrence: FR)
  Receive Date: 20211213
  Receipt Date: 20220506
  Transmission Date: 20220720
  Serious: Yes (Other)
  Sender: FDA-Public Use
  Company Number: FR-OTSUKA-2021_042417

PATIENT
  Age: 65 Year
  Sex: Male

DRUGS (2)
  1. TOLVAPTAN [Suspect]
     Active Substance: TOLVAPTAN
     Indication: End stage renal disease
     Dosage: 90 MG, QD
     Route: 048
     Dates: end: 202201
  2. TOLVAPTAN [Suspect]
     Active Substance: TOLVAPTAN
     Indication: Renal failure
     Dosage: 30 MG, QD
     Route: 048
     Dates: end: 202201

REACTIONS (7)
  - End stage renal disease [Recovered/Resolved]
  - Condition aggravated [Recovered/Resolved]
  - Glomerular filtration rate decreased [Recovered/Resolved]
  - Hyperkalaemia [Unknown]
  - Metabolic acidosis [Unknown]
  - Blood creatinine increased [Recovered/Resolved]
  - Product use in unapproved indication [Unknown]

NARRATIVE: CASE EVENT DATE: 20211129
